FAERS Safety Report 5794611-9 (Version None)
Quarter: 2008Q2

REPORT INFORMATION
  Report Type: 
  Country: None (occurrence: None)
  Receive Date: 20080627
  Receipt Date: 20080627
  Transmission Date: 20081010
  Serious: Yes (Hospitalization)
  Sender: FDA-Public Use
  Company Number: None

PATIENT

DRUGS (2)
  1. ZITHROMAX [Suspect]
     Indication: PULMONARY CONGESTION
     Dosage: PO
     Route: 048
     Dates: start: 20071006
  2. ALBUTEROL [Concomitant]

REACTIONS (2)
  - LIP SWELLING [None]
  - URTICARIA [None]
